FAERS Safety Report 15790639 (Version 2)
Quarter: 2019Q1

REPORT INFORMATION
  Report Type: Spontaneous
  Country: US (occurrence: US)
  Receive Date: 20190104
  Receipt Date: 20190308
  Transmission Date: 20190417
  Serious: Yes (Other)
  Sender: FDA-Public Use
  Company Number: US-PFIZER INC-2019005442

PATIENT
  Age: 64 Year
  Sex: Female

DRUGS (1)
  1. VENLAFAXINE HCL [Suspect]
     Active Substance: VENLAFAXINE HYDROCHLORIDE
     Indication: ANXIETY
     Dosage: 225 MG, DAILY (75 MG (2) IN AM, (1) PM)
     Route: 048
     Dates: start: 2013

REACTIONS (4)
  - Malaise [Unknown]
  - Hypersomnia [Unknown]
  - Depression [Unknown]
  - Drug ineffective [Unknown]
